FAERS Safety Report 17165572 (Version 2)
Quarter: 2019Q4

REPORT INFORMATION
  Report Type: Report from Study
  Country: ES (occurrence: ES)
  Receive Date: 20191217
  Receipt Date: 20191227
  Transmission Date: 20200122
  Serious: Yes (Other)
  Sender: FDA-Public Use
  Company Number: ES-JAZZ-2019-ES-017237

PATIENT
  Sex: Female
  Weight: 56.9 kg

DRUGS (2)
  1. DEFITELIO [Suspect]
     Active Substance: DEFIBROTIDE SODIUM
     Indication: ATRIAL TACHYCARDIA
     Dosage: 6.25 MG/KG/6H
  2. DEFITELIO [Suspect]
     Active Substance: DEFIBROTIDE SODIUM
     Dosage: 3.5 MG/KG, QID

REACTIONS (5)
  - Thrombocytopenia [Unknown]
  - Herpes virus infection [Not Recovered/Not Resolved]
  - Immunosuppression [Unknown]
  - Mouth haemorrhage [Recovered/Resolved]
  - Off label use [Unknown]
